FAERS Safety Report 20958668 (Version 2)
Quarter: 2022Q4

REPORT INFORMATION
  Report Type: Spontaneous
  Country: US (occurrence: US)
  Receive Date: 20220614
  Receipt Date: 20221111
  Transmission Date: 20230112
  Serious: No
  Sender: FDA-Public Use
  Company Number: US-BRISTOL-MYERS SQUIBB COMPANY-2022-043952

PATIENT
  Age: 64 Year
  Sex: Male
  Weight: 129.27 kg

DRUGS (14)
  1. ORENCIA [Suspect]
     Active Substance: ABATACEPT
     Indication: Psoriatic arthropathy
     Dosage: STRENGTH:  1000 MG, 250 MG VIALS (4)  ?FREQ : EVERY 4 WEEKS
     Route: 065
     Dates: start: 20220216
  2. ELIQUIS [Suspect]
     Active Substance: APIXABAN
     Indication: Product used for unknown indication
     Route: 065
  3. ALLOPURINOL [Concomitant]
     Active Substance: ALLOPURINOL
  4. OXYCODONE [Concomitant]
     Active Substance: OXYCODONE
  5. HYDROXYCHLOROQUINE DIPHOSPHATE [Concomitant]
     Active Substance: HYDROXYCHLOROQUINE DIPHOSPHATE
  6. POTASSIUM CHLORIDE [Concomitant]
     Active Substance: POTASSIUM CHLORIDE
  7. TIZANIDINE [Concomitant]
     Active Substance: TIZANIDINE
  8. VITAMIN D3 [Concomitant]
     Active Substance: CHOLECALCIFEROL
  9. ZOLOFT [Concomitant]
     Active Substance: SERTRALINE HYDROCHLORIDE
  10. CARVEDILOL [Concomitant]
     Active Substance: CARVEDILOL
  11. GABAPENTIN [Concomitant]
     Active Substance: GABAPENTIN
  12. HUMALOG [Concomitant]
     Active Substance: INSULIN LISPRO
     Dosage: MIX 75-25
  13. LASIX [Concomitant]
     Active Substance: FUROSEMIDE
  14. MIRAPEX [Concomitant]
     Active Substance: PRAMIPEXOLE DIHYDROCHLORIDE

REACTIONS (1)
  - Product dose omission issue [Unknown]
